FAERS Safety Report 5748656-5 (Version None)
Quarter: 2008Q2

REPORT INFORMATION
  Report Type: 
  Country: None (occurrence: None)
  Receive Date: 20080521
  Receipt Date: 20080505
  Transmission Date: 20081010
  Serious: Yes (Death)
  Sender: FDA-Public Use
  Company Number: B0520256A

PATIENT
  Age: 75 Year
  Sex: Female

DRUGS (6)
  1. PREDNISOLONE [Suspect]
     Indication: LYMPHOMA
  2. RITUXIMAB (FORMULATION UNKNOWN) (RITUXIMAB) [Concomitant]
     Indication: LYMPHOMA
  3. CYCLOPHOSPHAMIDE [Suspect]
     Indication: LYMPHOMA
  4. DOXORUBICIN HCL [Suspect]
     Indication: LYMPHOMA
  5. VINCRISTINE [Suspect]
  6. LAMIVUDINE [Suspect]
     Indication: ANTIVIRAL PROPHYLAXIS

REACTIONS (3)
  - ACUTE HEPATIC FAILURE [None]
  - HEPATITIS B [None]
  - NO THERAPEUTIC RESPONSE [None]
